FAERS Safety Report 5932425-7 (Version None)
Quarter: 2008Q4

REPORT INFORMATION
  Report Type: 
  Country: None (occurrence: None)
  Receive Date: 20081028
  Receipt Date: 20081022
  Transmission Date: 20090506
  Serious: Yes (Death)
  Sender: FDA-Public Use
  Company Number: IT-BRISTOL-MYERS SQUIBB COMPANY-14359079

PATIENT
  Age: 29 Year
  Sex: Male

DRUGS (9)
  1. CISPLATIN [Suspect]
     Indication: PINEAL PARENCHYMAL NEOPLASM MALIGNANT
     Dosage: ON DAYS 1 THROUGH 5.THE PATIENT HAD RECEIVED FOUR COURSES OF CHEMOTHERAPY
     Route: 042
  2. CISPLATIN [Suspect]
     Indication: METASTASES TO MENINGES
     Dosage: ON DAYS 1 THROUGH 5.THE PATIENT HAD RECEIVED FOUR COURSES OF CHEMOTHERAPY
     Route: 042
  3. CISPLATIN [Suspect]
     Indication: TESTICULAR EMBRYONAL CARCINOMA STAGE I
     Dosage: ON DAYS 1 THROUGH 5.THE PATIENT HAD RECEIVED FOUR COURSES OF CHEMOTHERAPY
     Route: 042
  4. ETOPOSIDE [Suspect]
     Indication: PINEAL PARENCHYMAL NEOPLASM MALIGNANT
     Dosage: ON DAYS 1 THROUGH 5.THE PATIENT HAD RECEIVED FOUR COURSES OF CHEMOTHERAPY
     Route: 042
  5. ETOPOSIDE [Suspect]
     Indication: METASTASES TO MENINGES
     Dosage: ON DAYS 1 THROUGH 5.THE PATIENT HAD RECEIVED FOUR COURSES OF CHEMOTHERAPY
     Route: 042
  6. ETOPOSIDE [Suspect]
     Indication: TESTICULAR EMBRYONAL CARCINOMA STAGE I
     Dosage: ON DAYS 1 THROUGH 5.THE PATIENT HAD RECEIVED FOUR COURSES OF CHEMOTHERAPY
     Route: 042
  7. BLEOMYCIN SULFATE [Suspect]
     Indication: PINEAL PARENCHYMAL NEOPLASM MALIGNANT
     Dosage: ON DAYS 2, 8 AND 15.THE PATIENT HAD RECEIVED FOUR COURSES OF CHEMOTHERAPY
     Route: 042
  8. BLEOMYCIN SULFATE [Suspect]
     Indication: METASTASES TO MENINGES
     Dosage: ON DAYS 2, 8 AND 15.THE PATIENT HAD RECEIVED FOUR COURSES OF CHEMOTHERAPY
     Route: 042
  9. BLEOMYCIN SULFATE [Suspect]
     Indication: TESTICULAR EMBRYONAL CARCINOMA STAGE I
     Dosage: ON DAYS 2, 8 AND 15.THE PATIENT HAD RECEIVED FOUR COURSES OF CHEMOTHERAPY
     Route: 042

REACTIONS (1)
  - CHLOROMA [None]
